FAERS Safety Report 23990444 (Version 2)
Quarter: 2024Q3

REPORT INFORMATION
  Report Type: Spontaneous
  Country: US (occurrence: US)
  Receive Date: 20240619
  Receipt Date: 20240705
  Transmission Date: 20241017
  Serious: No
  Sender: EISAI
  Company Number: US-Eisai-EC-2024-165033

PATIENT
  Age: 73 Year
  Sex: Female

DRUGS (3)
  1. LEQEMBI [Suspect]
     Active Substance: LECANEMAB-IRMB
     Indication: Dementia Alzheimer^s type
     Dosage: DOSE UNKNOWN
     Route: 042
     Dates: start: 20240425, end: 202405
  2. LEQEMBI [Suspect]
     Active Substance: LECANEMAB-IRMB
     Dosage: DOSE UNKNOWN
     Route: 042
     Dates: start: 20240606, end: 20240606
  3. LISINOPRIL [Concomitant]
     Active Substance: LISINOPRIL

REACTIONS (4)
  - Headache [Recovered/Resolved]
  - Chills [Recovered/Resolved]
  - Amyloid related imaging abnormality-microhaemorrhages and haemosiderin deposits [Unknown]
  - Amyloid related imaging abnormality-oedema/effusion [Unknown]

NARRATIVE: CASE EVENT DATE: 20240425
